FAERS Safety Report 9220967 (Version 3)
Quarter: 2013Q4

REPORT INFORMATION
  Report Type: Spontaneous
  Country: BR (occurrence: BR)
  Receive Date: 20130409
  Receipt Date: 20131021
  Transmission Date: 20140711
  Serious: Yes (Other)
  Sender: FDA-Public Use
  Company Number: PHHY2013BR033548

PATIENT
  Age: 75 Year
  Sex: Female
  Weight: 67 kg

DRUGS (10)
  1. APRESOLIN [Suspect]
     Indication: HYPERTENSION
     Dosage: 25 MG (AT NIGHT), DAILY
  2. APRESOLIN [Suspect]
     Dosage: 25 MG (IN THE MORNING ), DAILY
  3. APRESOLIN [Suspect]
     Dosage: 25 MG, BID (ONE IN THE MORNING AND ANOTHER AT NIGHT)
     Dates: start: 201306
  4. ATENOLOL [Suspect]
     Indication: HEART RATE ABNORMAL
     Dosage: 0.5 DF, AT NIGHT
  5. ATENOLOL [Suspect]
     Dosage: 1 DF, IN THE MORNING
  6. ALDOMET [Suspect]
     Indication: HYPERTENSION
     Dosage: 500 MG, TWO TIMES PER DAY
  7. ADEFORTE [Concomitant]
     Dosage: UNK UKN, UNK
  8. CALCIUM [Concomitant]
     Dosage: 2 DF, DAILY
  9. CALCIUM CARBONATE W/VITAMIN D NOS [Concomitant]
     Indication: HYPOVITAMINOSIS
     Dosage: 1 DF, DAILY
     Route: 048
  10. CALTRATE [Concomitant]
     Indication: BLOOD CALCIUM
     Dosage: 600 MG, DAILY
     Route: 048
     Dates: start: 201303

REACTIONS (18)
  - Osteoporosis [Not Recovered/Not Resolved]
  - Uterine polyp [Recovered/Resolved]
  - Eye pain [Recovered/Resolved]
  - Abdominal pain [Recovering/Resolving]
  - Vision blurred [Not Recovered/Not Resolved]
  - Asthenopia [Not Recovered/Not Resolved]
  - Abnormal sensation in eye [Not Recovered/Not Resolved]
  - Daydreaming [Not Recovered/Not Resolved]
  - Confusional state [Unknown]
  - Throat lesion [Unknown]
  - Cough [Not Recovered/Not Resolved]
  - Headache [Recovered/Resolved]
  - Malaise [Recovering/Resolving]
  - Nausea [Recovered/Resolved]
  - Vomiting [Recovered/Resolved]
  - Diarrhoea [Recovered/Resolved]
  - Dizziness [Recovered/Resolved]
  - Wrong technique in drug usage process [Unknown]
